FAERS Safety Report 22223304 (Version 1)
Quarter: 2023Q2

REPORT INFORMATION
  Report Type: Spontaneous
  Country: US (occurrence: None)
  Receive Date: 20230415
  Receipt Date: 20230415
  Transmission Date: 20230721
  Serious: Yes (Hospitalization)
  Sender: FDA-Public Use
  Company Number: None

PATIENT
  Sex: Female
  Weight: 113.85 kg

DRUGS (33)
  1. LENALIDOMIDE [Suspect]
     Active Substance: LENALIDOMIDE
     Indication: Plasma cell myeloma
     Dosage: FREQUENCY : DAILY;?
     Route: 048
  2. ALPRAZOLAM [Concomitant]
     Active Substance: ALPRAZOLAM
  3. ALBUTEROL [Concomitant]
     Active Substance: ALBUTEROL
  4. ALLOPURINOL [Concomitant]
     Active Substance: ALLOPURINOL
  5. CALCIUM CARBONATE [Concomitant]
     Active Substance: CALCIUM CARBONATE
  6. CLOBETASOL [Concomitant]
     Active Substance: CLOBETASOL
  7. COLACE [Concomitant]
     Active Substance: DOCUSATE SODIUM
  8. DULOXETINE [Concomitant]
     Active Substance: DULOXETINE
  9. DARZALEX [Concomitant]
     Active Substance: DARATUMUMAB
  10. DEXAMETHASONE [Concomitant]
     Active Substance: DEXAMETHASONE
  11. FLUOCINONIDE [Concomitant]
     Active Substance: FLUOCINONIDE
  12. KETOCONAZOLE [Concomitant]
     Active Substance: KETOCONAZOLE
  13. LABETALOL [Concomitant]
     Active Substance: LABETALOL\LABETALOL HYDROCHLORIDE
  14. LASIX [Concomitant]
     Active Substance: FUROSEMIDE
  15. LEVETIRACETAM [Concomitant]
     Active Substance: LEVETIRACETAM
  16. MS CONTIN [Concomitant]
     Active Substance: MORPHINE SULFATE
  17. METFORMIN [Concomitant]
     Active Substance: METFORMIN HYDROCHLORIDE
  18. METOLAZONE [Concomitant]
     Active Substance: METOLAZONE
  19. MUPIROCIN [Concomitant]
     Active Substance: MUPIROCIN
  20. NARCAN [Concomitant]
     Active Substance: NALOXONE HYDROCHLORIDE
  21. NORTRIPTYLINE [Concomitant]
     Active Substance: NORTRIPTYLINE
  22. OMEPRAZOLE [Concomitant]
     Active Substance: OMEPRAZOLE
  23. PREDNISONE [Concomitant]
     Active Substance: PREDNISONE
  24. PROMETHAZINE [Concomitant]
     Active Substance: PROMETHAZINE HYDROCHLORIDE
  25. ROXICODONE [Concomitant]
     Active Substance: OXYCODONE HYDROCHLORIDE
  26. SULFASALAZINE [Concomitant]
     Active Substance: SULFASALAZINE
  27. TALTZ [Concomitant]
     Active Substance: IXEKIZUMAB
  28. TIZANIDINE [Concomitant]
     Active Substance: TIZANIDINE
  29. TRELEGY ELLIPTA [Concomitant]
     Active Substance: FLUTICASONE FUROATE\UMECLIDINIUM BROMIDE\VILANTEROL TRIFENATATE
  30. TRIAMCINOLONE [Concomitant]
     Active Substance: TRIAMCINOLONE
  31. VALTREX [Concomitant]
     Active Substance: VALACYCLOVIR HYDROCHLORIDE
  32. Veraparmil [Concomitant]
  33. XARELTO [Concomitant]
     Active Substance: RIVAROXABAN

REACTIONS (2)
  - Dyspnoea [None]
  - Chest pain [None]
